FAERS Safety Report 5196292-4 (Version None)
Quarter: 2007Q1

REPORT INFORMATION
  Report Type: 
  Country: None (occurrence: None)
  Receive Date: 20070102
  Receipt Date: 20061226
  Transmission Date: 20070707
  Serious: Yes (Other)
  Sender: FDA-Public Use
  Company Number: JP-PFIZER INC-2006155331

PATIENT
  Age: 56 Year
  Sex: Female

DRUGS (6)
  1. NORVASC [Suspect]
     Indication: HYPERTENSION
     Dosage: DAILY DOSE:2.5MG
     Route: 048
     Dates: start: 20061126, end: 20061128
  2. ALLOPURINOL [Concomitant]
     Route: 048
  3. FERROUS FUMARATE [Concomitant]
     Route: 048
  4. SODIUM BICARBONATE [Concomitant]
     Route: 048
     Dates: start: 20050601
  5. KREMEZIN [Concomitant]
     Route: 048
     Dates: start: 20050501
  6. BLOPRESS [Concomitant]
     Route: 048
     Dates: start: 20050701

REACTIONS (2)
  - EYELID OEDEMA [None]
  - HAEMATURIA [None]
